FAERS Safety Report 5934987-2 (Version None)
Quarter: 2008Q4

REPORT INFORMATION
  Report Type: 
  Country: None (occurrence: None)
  Receive Date: 20081030
  Receipt Date: 20081022
  Transmission Date: 20090506
  Serious: Yes (Hospitalization, Other)
  Sender: FDA-Public Use
  Company Number: US-RANBAXY-2008US-18881

PATIENT

DRUGS (8)
  1. VERAPAMIL [Suspect]
     Indication: HYPERTENSION
     Dosage: UNK MG, UNK
     Route: 048
     Dates: start: 19950101
  2. NIASPAN [Suspect]
     Indication: HIGH DENSITY LIPOPROTEIN DECREASED
     Dosage: 500 MG, QD
     Route: 048
     Dates: start: 20030101
  3. NIASPAN [Suspect]
     Indication: BLOOD CHOLESTEROL INCREASED
     Dosage: 1000 MG, QD
     Route: 048
     Dates: end: 20080701
  4. NIASPAN [Suspect]
     Dosage: 1000 MG, BID
     Route: 048
     Dates: start: 20080701, end: 20080701
  5. NIASPAN [Suspect]
     Dosage: 1000 MG, QD
     Route: 048
     Dates: start: 20080701
  6. ASPIRIN [Suspect]
     Indication: DRUG USE FOR UNKNOWN INDICATION
     Dosage: 81.000000 MG, QD
     Route: 048
     Dates: end: 20081015
  7. DIOVAN HCT [Concomitant]
     Indication: HYPERTENSION
     Dosage: 160 MG, BID
     Route: 048
  8. SIMVASTATIN [Concomitant]
     Indication: BLOOD CHOLESTEROL
     Dosage: 40.000000 MG, QD
     Route: 048

REACTIONS (16)
  - ATRIAL FIBRILLATION [None]
  - BALANCE DISORDER [None]
  - BONE EROSION [None]
  - CEREBROVASCULAR ACCIDENT [None]
  - CONTUSION [None]
  - CORONARY ARTERY OCCLUSION [None]
  - DISCOMFORT [None]
  - HALLUCINATION [None]
  - HEADACHE [None]
  - HYPOTENSION [None]
  - MALAISE [None]
  - MOUTH HAEMORRHAGE [None]
  - MYOCARDIAL INFARCTION [None]
  - PARAESTHESIA ORAL [None]
  - VENTRICULAR EXTRASYSTOLES [None]
  - VISUAL IMPAIRMENT [None]
